FAERS Safety Report 14480534 (Version 1)
Quarter: 2018Q1

REPORT INFORMATION
  Report Type: Spontaneous
  Country: US (occurrence: US)
  Receive Date: 20180201
  Receipt Date: 20180201
  Transmission Date: 20180509
  Serious: Yes (Hospitalization)
  Sender: FDA-Public Use
  Company Number: None

PATIENT
  Age: 41 Year
  Sex: Male

DRUGS (2)
  1. PANTOPRAZOLE [Suspect]
     Active Substance: PANTOPRAZOLE
  2. DASATINIB. [Suspect]
     Active Substance: DASATINIB

REACTIONS (4)
  - Seizure [None]
  - Pyrexia [None]
  - Clostridium test positive [None]
  - Diarrhoea [None]
